FAERS Safety Report 9827676 (Version 1)
Quarter: 2014Q1

REPORT INFORMATION
  Report Type: Spontaneous
  Country: JP (occurrence: JP)
  Receive Date: 20140117
  Receipt Date: 20140117
  Transmission Date: 20141002
  Serious: Yes (Hospitalization)
  Sender: FDA-Public Use
  Company Number: JP-B.I. PHARMACEUTICALS,INC./RIDGEFIELD-2014-BI-02071NB

PATIENT
  Age: 85 Year
  Sex: Female

DRUGS (3)
  1. MIRAPEX LA [Suspect]
     Indication: PARKINSON^S DISEASE
     Route: 048
     Dates: start: 201305
  2. TRERIEF [Concomitant]
     Indication: PARKINSON^S DISEASE
     Route: 048
  3. BI-SIFROL [Concomitant]
     Indication: PARKINSON^S DISEASE

REACTIONS (1)
  - Parkinsonism [Recovered/Resolved]
